FAERS Safety Report 5302195-4 (Version None)
Quarter: 2007Q2

REPORT INFORMATION
  Report Type: 
  Country: None (occurrence: None)
  Receive Date: 20070412
  Receipt Date: 20070327
  Transmission Date: 20071010
  Serious: Yes (Hospitalization)
  Sender: FDA-Public Use
  Company Number: DSA_29658_2007

PATIENT
  Age: 80 Year
  Sex: Female

DRUGS (7)
  1. RENITEC /00574901/ [Suspect]
     Dosage: DF UNK PO
     Route: 048
  2. ZOCOR [Suspect]
     Dosage: DF UNK PO
     Route: 048
  3. GLUCOPHAGE [Suspect]
     Dosage: DF
  4. ALLOPURINOL [Concomitant]
  5. LANACRIST [Concomitant]
  6. GLYBURIDE [Concomitant]
  7. IMDUR [Concomitant]

REACTIONS (11)
  - BLOOD CREATININE INCREASED [None]
  - BLOOD POTASSIUM INCREASED [None]
  - CHEST PAIN [None]
  - DEPRESSED LEVEL OF CONSCIOUSNESS [None]
  - DIALYSIS [None]
  - HYPOGLYCAEMIA [None]
  - LACTIC ACIDOSIS [None]
  - NAUSEA [None]
  - PYREXIA [None]
  - URINE OUTPUT DECREASED [None]
  - VOMITING [None]
